FAERS Safety Report 17192010 (Version 1)
Quarter: 2019Q4

REPORT INFORMATION
  Report Type: Spontaneous
  Country: CA (occurrence: CA)
  Receive Date: 20191223
  Receipt Date: 20191223
  Transmission Date: 20200122
  Serious: Yes (Other)
  Sender: FDA-Public Use
  Company Number: CA-AMICUS-AMI_362

PATIENT
  Age: 61 Year
  Sex: Female

DRUGS (1)
  1. GALAFOLD [Suspect]
     Active Substance: MIGALASTAT HYDROCHLORIDE
     Indication: FABRY^S DISEASE
     Dosage: 123 MILLIGRAM, QOD
     Route: 048
     Dates: start: 20190208

REACTIONS (19)
  - Product dose omission [Recovered/Resolved]
  - Stress [Recovering/Resolving]
  - Rash [Recovered/Resolved]
  - Abdominal discomfort [Recovering/Resolving]
  - Inappropriate schedule of product administration [Unknown]
  - Asthma [Recovering/Resolving]
  - Impaired work ability [Recovering/Resolving]
  - Product dose omission [Recovered/Resolved]
  - Extra dose administered [Recovered/Resolved]
  - Pruritus [Recovering/Resolving]
  - Abdominal pain [Recovered/Resolved]
  - Dementia [Recovering/Resolving]
  - Back pain [Recovering/Resolving]
  - Cardiac flutter [Recovering/Resolving]
  - Poor quality sleep [Unknown]
  - Pollakiuria [Recovering/Resolving]
  - Diarrhoea [Recovering/Resolving]
  - Insomnia [Recovering/Resolving]
  - Temperature intolerance [Recovering/Resolving]

NARRATIVE: CASE EVENT DATE: 2019
